FAERS Safety Report 7898272-4 (Version None)
Quarter: 2011Q4

REPORT INFORMATION
  Report Type: 
  Country: None (occurrence: None)
  Receive Date: 20111107
  Receipt Date: 20111026
  Transmission Date: 20120403
  Serious: Yes (Hospitalization)
  Sender: FDA-Public Use
  Company Number: US-GLAXOSMITHKLINE-B0757869A

PATIENT
  Age: 42 Year
  Sex: Male
  Weight: 136.4 kg

DRUGS (4)
  1. AVANDIA [Suspect]
     Indication: DIABETES MELLITUS
     Dosage: 4MG TWICE PER DAY
     Route: 048
     Dates: start: 20010101, end: 20030101
  2. LIPITOR [Concomitant]
  3. INSULIN [Concomitant]
  4. GLUCOPHAGE [Concomitant]

REACTIONS (5)
  - CORONARY ARTERY DISEASE [None]
  - CARDIAC FAILURE CONGESTIVE [None]
  - MYOCARDIAL INFARCTION [None]
  - HEART RATE IRREGULAR [None]
  - ISCHAEMIC CARDIOMYOPATHY [None]
